FAERS Safety Report 8522886-1 (Version None)
Quarter: 2012Q3

REPORT INFORMATION
  Report Type: 
  Country: None (occurrence: None)
  Receive Date: 20120720
  Receipt Date: 20120710
  Transmission Date: 20120928
  Serious: Yes (Hospitalization, Other)
  Sender: FDA-Public Use
  Company Number: US-BIOGENIDEC-2012BI023352

PATIENT
  Sex: Female

DRUGS (1)
  1. AVONEX [Suspect]
     Indication: MULTIPLE SCLEROSIS
     Route: 030
     Dates: start: 19971201, end: 20110601

REACTIONS (5)
  - CARDIAC FAILURE [None]
  - RASH [None]
  - HYPOTENSION [None]
  - HYPONATRAEMIA [None]
  - HYPOKALAEMIA [None]
